FAERS Safety Report 13645802 (Version 1)
Quarter: 2017Q2

REPORT INFORMATION
  Report Type: Spontaneous
  Country: GB (occurrence: GB)
  Receive Date: 20170613
  Receipt Date: 20170613
  Transmission Date: 20170830
  Serious: Yes (Hospitalization)
  Sender: FDA-Public Use
  Company Number: GB-ACCORD-052308

PATIENT
  Age: 69 Year
  Sex: Female

DRUGS (8)
  1. METOJECT [Suspect]
     Active Substance: METHOTREXATE SODIUM
     Indication: RHEUMATOID ARTHRITIS
     Dosage: 15MG/0.30ML
     Dates: start: 2015
  2. ALENDRONATE SODIUM/ALENDRONIC ACID [Concomitant]
  3. CARDURA [Concomitant]
     Active Substance: DOXAZOSIN MESYLATE
  4. PARACETAMOL [Concomitant]
     Active Substance: ACETAMINOPHEN
  5. METHOTREXATE. [Suspect]
     Active Substance: METHOTREXATE
     Indication: RHEUMATOID ARTHRITIS
     Route: 048
  6. NAPROXEN. [Suspect]
     Active Substance: NAPROXEN
     Indication: PRODUCT USED FOR UNKNOWN INDICATION
  7. RAMIPRIL. [Concomitant]
     Active Substance: RAMIPRIL
  8. TRAMADOL. [Concomitant]
     Active Substance: TRAMADOL

REACTIONS (4)
  - Mouth ulceration [Recovered/Resolved]
  - Pharyngeal ulceration [Recovered/Resolved]
  - Gastric ulcer haemorrhage [Unknown]
  - Full blood count decreased [Recovering/Resolving]
